FAERS Safety Report 6920944-6 (Version None)
Quarter: 2010Q3

REPORT INFORMATION
  Report Type: 
  Country: None (occurrence: None)
  Receive Date: 20100812
  Receipt Date: 20100802
  Transmission Date: 20110219
  Serious: Yes (Other)
  Sender: FDA-Public Use
  Company Number: JP-PFIZER INC-2010091462

PATIENT

DRUGS (1)
  1. ZYVOX [Suspect]
     Route: 041

REACTIONS (1)
  - HYPERGLYCAEMIA [None]
